FAERS Safety Report 8252279-6 (Version None)
Quarter: 2012Q2

REPORT INFORMATION
  Report Type: 
  Country: None (occurrence: None)
  Receive Date: 20120402
  Receipt Date: 20110429
  Transmission Date: 20120825
  Serious: No
  Sender: FDA-Public Use
  Company Number: US-ABBOTT-11P-163-0804518-00

PATIENT
  Sex: Male

DRUGS (2)
  1. TESTOSTERONE [Suspect]
     Dosage: DAILY DOSE:  UNKNOWN, AS USED: 5 GRAM (S), FREQUENCY: EVERY OTHER DAY
     Route: 062
  2. TESTOSTERONE [Suspect]
     Indication: BLOOD TESTOSTERONE DECREASED
     Dosage: DAILY DOSE: 5 GRAM(S)
     Route: 062

REACTIONS (2)
  - SLEEP APNOEA SYNDROME [None]
  - BLOOD TESTOSTERONE INCREASED [None]
